FAERS Safety Report 8552303-7 (Version None)
Quarter: 2012Q3

REPORT INFORMATION
  Report Type: 
  Country: None (occurrence: None)
  Receive Date: 20120723
  Receipt Date: 20120723
  Transmission Date: 20120928
  Serious: No
  Sender: FDA-Public Use
  Company Number: None

PATIENT
  Age: 58 Year
  Sex: Female

DRUGS (1)
  1. DABIGATRAN [Suspect]
     Dosage: 150 MG BID PO
     Route: 048
     Dates: start: 20110823, end: 20110831

REACTIONS (1)
  - RASH [None]
